FAERS Safety Report 6756895-X (Version None)
Quarter: 2010Q2

REPORT INFORMATION
  Report Type: 
  Country: None (occurrence: None)
  Receive Date: 20100604
  Receipt Date: 20100526
  Transmission Date: 20101027
  Serious: Yes (Death, Hospitalization)
  Sender: FDA-Public Use
  Company Number: TR-ABBOTT-10P-161-0646983-00

PATIENT
  Age: 22 Year
  Sex: Female

DRUGS (3)
  1. TARKA [Suspect]
     Indication: SUICIDE ATTEMPT
     Dosage: 20 X 4MG/240MG
     Route: 048
     Dates: start: 20100526, end: 20100526
  2. GASTROL S [Suspect]
     Indication: SUICIDE ATTEMPT
     Route: 048
     Dates: start: 20100526, end: 20100526
  3. DIAPHORMINE [Suspect]
     Indication: SUICIDE ATTEMPT
     Dosage: 1 BLISTER
     Route: 048
     Dates: start: 20100526, end: 20100526

REACTIONS (6)
  - BRADYCARDIA [None]
  - BRAIN DEATH [None]
  - HYPOGLYCAEMIA [None]
  - HYPOTENSION [None]
  - LOSS OF CONSCIOUSNESS [None]
  - SUICIDE ATTEMPT [None]
